FAERS Safety Report 10077302 (Version 1)
Quarter: 2014Q2

REPORT INFORMATION
  Report Type: Spontaneous
  Country: US (occurrence: US)
  Receive Date: 20140414
  Receipt Date: 20140414
  Transmission Date: 20141212
  Serious: No
  Sender: FDA-Public Use
  Company Number: US-BANPHARM-20131296

PATIENT
  Age: 84 Year
  Sex: Male
  Weight: 70.29 kg

DRUGS (4)
  1. NAPROXEN SODIUM 220 MG [Suspect]
     Indication: PAIN
     Dosage: 1 DF, QD,
     Route: 048
     Dates: start: 20130421, end: 20130424
  2. VITAMINS [Concomitant]
  3. LIPID MODIFYING AGENTS [Concomitant]
  4. THYROID THERAPY [Concomitant]

REACTIONS (4)
  - Retching [Recovered/Resolved]
  - Oral discomfort [Recovered/Resolved]
  - Throat irritation [Recovered/Resolved]
  - Vomiting [Recovered/Resolved]
